FAERS Safety Report 6915455-8 (Version None)
Quarter: 2010Q3

REPORT INFORMATION
  Report Type: 
  Country: None (occurrence: None)
  Receive Date: 20100809
  Receipt Date: 20100604
  Transmission Date: 20110219
  Serious: No
  Sender: FDA-Public Use
  Company Number: US-ABBOTT-10P-163-0649481-00

PATIENT
  Sex: Female
  Weight: 40.86 kg

DRUGS (10)
  1. DEPAKOTE ER [Suspect]
     Indication: POST-TRAUMATIC STRESS DISORDER
     Route: 048
     Dates: start: 20100301
  2. DEPAKOTE ER [Suspect]
     Indication: BIPOLAR DISORDER
  3. DEPAKOTE ER [Suspect]
     Dosage: ALONG W/250MG DEPAKOTE ER
     Route: 048
     Dates: start: 20100301
  4. DEPAKOTE ER [Suspect]
  5. KLONOPIN [Concomitant]
     Indication: INSOMNIA
     Route: 048
  6. RISPERDAL [Concomitant]
     Indication: INSOMNIA
     Dosage: AT NIGHT
     Route: 048
  7. RISPERDAL [Concomitant]
     Indication: POST-TRAUMATIC STRESS DISORDER
  8. ROZEREM [Concomitant]
     Indication: INSOMNIA
     Route: 048
  9. BUSPAR [Concomitant]
     Indication: DEPRESSION
     Route: 048
     Dates: start: 20100604
  10. BUSPAR [Concomitant]
     Indication: POST-TRAUMATIC STRESS DISORDER

REACTIONS (7)
  - ALOPECIA [None]
  - ASTHENIA [None]
  - BALANCE DISORDER [None]
  - GAIT DISTURBANCE [None]
  - OEDEMA [None]
  - TREMOR [None]
  - WEIGHT INCREASED [None]
